FAERS Safety Report 4811136-5 (Version None)
Quarter: 2005Q4

REPORT INFORMATION
  Report Type: 
  Country: None (occurrence: None)
  Receive Date: 20051027
  Receipt Date: 20050701
  Transmission Date: 20060501
  Serious: No
  Sender: FDA-Public Use
  Company Number: JP-GLAXOSMITHKLINE-B0386727A

PATIENT
  Age: 61 Year
  Sex: Male

DRUGS (10)
  1. VALTREX [Suspect]
     Indication: HERPES ZOSTER
     Dosage: 1000MG THREE TIMES PER DAY
     Route: 048
     Dates: start: 20050624, end: 20050628
  2. GASTER [Concomitant]
     Route: 048
  3. SELBEX [Concomitant]
     Route: 048
  4. TOUGHMAC E [Concomitant]
     Route: 048
  5. AMLODIPINE BESYLATE [Concomitant]
     Indication: HYPERTENSION
     Dosage: 5MG PER DAY
     Route: 048
     Dates: start: 19970125, end: 20050724
  6. SANDONORM [Concomitant]
     Dosage: 1 PER DAY
     Route: 048
  7. HARNAL [Concomitant]
     Dosage: 1 PER DAY
     Route: 048
  8. LIPIDIL [Concomitant]
     Route: 048
  9. PROHEPARUM [Concomitant]
     Route: 048
  10. ARASENA-A [Concomitant]
     Route: 065

REACTIONS (2)
  - HAEMORRHAGE SUBCUTANEOUS [None]
  - PANCREATITIS ACUTE [None]
